FAERS Safety Report 15781068 (Version 1)
Quarter: 2019Q1

REPORT INFORMATION
  Report Type: Spontaneous
  Country: FR (occurrence: FR)
  Receive Date: 20190102
  Receipt Date: 20190102
  Transmission Date: 20190417
  Serious: Yes (Other)
  Sender: FDA-Public Use
  Company Number: FR-ASTELLAS-2016US008290

PATIENT
  Age: 3 Year
  Sex: Female
  Weight: 14 kg

DRUGS (7)
  1. CRESEMBA [Suspect]
     Active Substance: ISAVUCONAZONIUM SULFATE
     Route: 042
  2. AMBISOME [Suspect]
     Active Substance: AMPHOTERICIN B
     Indication: MUCORMYCOSIS
     Route: 065
  3. CRESEMBA [Suspect]
     Active Substance: ISAVUCONAZONIUM SULFATE
     Route: 048
  4. CRESEMBA [Suspect]
     Active Substance: ISAVUCONAZONIUM SULFATE
     Route: 042
  5. CRESEMBA [Suspect]
     Active Substance: ISAVUCONAZONIUM SULFATE
     Indication: MUCORMYCOSIS
     Route: 042
  6. AMBISOME [Suspect]
     Active Substance: AMPHOTERICIN B
     Route: 065
  7. CRESEMBA [Suspect]
     Active Substance: ISAVUCONAZONIUM SULFATE
     Route: 042

REACTIONS (8)
  - Blindness [Unknown]
  - Nausea [Unknown]
  - Product use issue [Unknown]
  - Leukaemia recurrent [Recovered/Resolved]
  - Dysphagia [Unknown]
  - Drug level below therapeutic [Unknown]
  - Vomiting [Recovered/Resolved]
  - Wrong technique in product usage process [Unknown]

NARRATIVE: CASE EVENT DATE: 20160216
